FAERS Safety Report 7014112-X (Version None)
Quarter: 2010Q3

REPORT INFORMATION
  Report Type: 
  Country: None (occurrence: None)
  Receive Date: 20100927
  Receipt Date: 20100917
  Transmission Date: 20110219
  Serious: Yes (Hospitalization)
  Sender: FDA-Public Use
  Company Number: US-US-EMD SERONO, INC.-231533J10USA

PATIENT
  Sex: Female
  Weight: 60 kg

DRUGS (22)
  1. REBIF [Suspect]
     Indication: MULTIPLE SCLEROSIS
     Route: 058
     Dates: start: 20091001, end: 20100108
  2. REBIF [Suspect]
     Route: 058
     Dates: start: 20100315
  3. CLEARADIN [Concomitant]
     Route: 065
  4. DOCUSATE [Concomitant]
     Route: 065
  5. DOCOLACE [Concomitant]
     Route: 065
  6. LISINOPRIL [Concomitant]
     Route: 065
  7. CALCIUM/D [Concomitant]
     Route: 065
  8. LEVOTHYROXINE SODIUM [Concomitant]
     Route: 065
  9. POTASSIUM [Concomitant]
     Route: 065
  10. CONSTULOSE [Concomitant]
     Route: 065
  11. SIMETHICONE [Concomitant]
     Route: 048
  12. PLAVIX [Concomitant]
     Route: 065
  13. GABAPENTIN [Concomitant]
     Route: 065
  14. BISAC EVAC [Concomitant]
     Route: 065
  15. LACTULOSE [Concomitant]
     Route: 048
  16. ALENDRONATE SODIUM [Concomitant]
     Route: 065
  17. AMBIEN [Concomitant]
     Route: 048
  18. BACLOFEN [Concomitant]
     Route: 048
     Dates: end: 20100101
  19. MIRAPEX [Concomitant]
     Route: 048
  20. DESMOPRESSIN ACETATE [Concomitant]
     Route: 065
  21. SULFAMETHOXAZOLE AND TRIMETHOPRIM [Concomitant]
     Route: 065
  22. OXYBUTYNIN [Concomitant]
     Route: 065

REACTIONS (4)
  - CYSTITIS [None]
  - HYPOCALCAEMIA [None]
  - MULTIPLE SCLEROSIS RELAPSE [None]
  - SEPSIS [None]
